FAERS Safety Report 15438532 (Version 1)
Quarter: 2018Q3

REPORT INFORMATION
  Report Type: Spontaneous
  Country: US (occurrence: US)
  Receive Date: 20180924
  Receipt Date: 20180924
  Transmission Date: 20181010
  Serious: Yes (Other)
  Sender: FDA-Public Use
  Company Number: None

PATIENT
  Age: 70 Year
  Sex: Male
  Weight: 64.48 kg

DRUGS (20)
  1. VENTOLIN HFA [Concomitant]
     Active Substance: ALBUTEROL SULFATE
  2. NITROSTAT [Concomitant]
     Active Substance: NITROGLYCERIN
  3. TEMOVATE [Concomitant]
     Active Substance: CLOBETASOL PROPIONATE
  4. ADVAIR DISKUS [Concomitant]
     Active Substance: FLUTICASONE PROPIONATE\SALMETEROL XINAFOATE
  5. PAROXETINE ER [Concomitant]
  6. CAPECITABINE. [Suspect]
     Active Substance: CAPECITABINE
     Indication: PANCREATIC CARCINOMA
     Route: 048
     Dates: start: 20180907, end: 20180924
  7. LIPITOR [Concomitant]
     Active Substance: ATORVASTATIN CALCIUM
  8. IMODIUM A?D [Concomitant]
     Active Substance: LOPERAMIDE HYDROCHLORIDE
  9. TRIAMCINOLONE [Concomitant]
     Active Substance: TRIAMCINOLONE
  10. LOPROX [Concomitant]
     Active Substance: CICLOPIROX\CICLOPIROX OLAMINE
  11. ZOFRAN ODT [Concomitant]
     Active Substance: ONDANSETRON HYDROCHLORIDE
  12. CLOBETASOL [Concomitant]
     Active Substance: CLOBETASOL
  13. CREON [Concomitant]
     Active Substance: PANCRELIPASE AMYLASE\PANCRELIPASE LIPASE\PANCRELIPASE PROTEASE
  14. PROCHLORPERAZINE. [Concomitant]
     Active Substance: PROCHLORPERAZINE
  15. SPIRIVA [Concomitant]
     Active Substance: TIOTROPIUM BROMIDE MONOHYDRATE
  16. ISOSORBIDE MONONITRATE ER [Concomitant]
     Active Substance: ISOSORBIDE MONONITRATE
  17. PROTONIX [Concomitant]
     Active Substance: PANTOPRAZOLE SODIUM
  18. POTASSIUM CHLORIDE CRYS ER [Concomitant]
     Active Substance: POTASSIUM CHLORIDE
  19. ASPIRIN. [Concomitant]
     Active Substance: ASPIRIN
  20. MULTIVITAMIN [Concomitant]
     Active Substance: VITAMINS

REACTIONS (2)
  - Drug ineffective [None]
  - Disease progression [None]

NARRATIVE: CASE EVENT DATE: 20180924
